FAERS Safety Report 19042622 (Version 1)
Quarter: 2021Q1

REPORT INFORMATION
  Report Type: Spontaneous
  Country: DE (occurrence: DE)
  Receive Date: 20210323
  Receipt Date: 20210323
  Transmission Date: 20210420
  Serious: Yes (Other)
  Sender: FDA-Public Use
  Company Number: NVSC2020DE318321

PATIENT
  Sex: Female

DRUGS (10)
  1. VALSARTAN. [Suspect]
     Active Substance: VALSARTAN
     Indication: HYPERTENSION
     Dosage: 320 MG, QD (160MG IN THE MORNING AND 160 MG IN THE EVENING)
     Route: 065
     Dates: start: 20131219
  2. IBUPROFEN. [Concomitant]
     Active Substance: IBUPROFEN
     Indication: PRODUCT USED FOR UNKNOWN INDICATION
     Route: 065
  3. VERAPAMIL [Suspect]
     Active Substance: VERAPAMIL HYDROCHLORIDE
     Indication: PRODUCT USED FOR UNKNOWN INDICATION
     Dosage: UNK
     Route: 065
  4. XYLOCAINE [Concomitant]
     Active Substance: LIDOCAINE HYDROCHLORIDE
     Dosage: UNK
     Route: 065
     Dates: start: 202010
  5. VALSARTAN ? 1 A PHARMA [Suspect]
     Active Substance: VALSARTAN
     Dosage: 320 MG
     Route: 065
     Dates: start: 201507, end: 201512
  6. PROVAS [Suspect]
     Active Substance: VALSARTAN
     Indication: PRODUCT USED FOR UNKNOWN INDICATION
     Dosage: UNK
     Route: 065
  7. XYLOCAINE [Concomitant]
     Active Substance: LIDOCAINE HYDROCHLORIDE
     Indication: ENDOSCOPY UPPER GASTROINTESTINAL TRACT
     Dosage: UNK
     Route: 065
     Dates: start: 201709
  8. DORMICUM [Concomitant]
     Indication: ENDOSCOPY UPPER GASTROINTESTINAL TRACT
     Dosage: 3 MG
     Route: 042
     Dates: start: 202010
  9. VALSARTAN ? 1 A PHARMA [Suspect]
     Active Substance: VALSARTAN
     Indication: HYPERTENSION
     Dosage: 320 MG
     Route: 065
     Dates: start: 201501, end: 201504
  10. PROPOFOL. [Concomitant]
     Active Substance: PROPOFOL
     Indication: ENDOSCOPY UPPER GASTROINTESTINAL TRACT
     Dosage: 120 MG
     Route: 042
     Dates: start: 201709

REACTIONS (12)
  - Arthropathy [Unknown]
  - Microcytic anaemia [Unknown]
  - Emotional distress [Unknown]
  - Anxiety [Unknown]
  - Abdominal discomfort [Unknown]
  - Quality of life decreased [Unknown]
  - Pain in extremity [Unknown]
  - Complication associated with device [Unknown]
  - Gastric mucosa erythema [Unknown]
  - Chills [Unknown]
  - Helicobacter gastritis [Unknown]
  - Limb discomfort [Unknown]
